FAERS Safety Report 23761808 (Version 1)
Quarter: 2024Q2

REPORT INFORMATION
  Report Type: Spontaneous
  Country: US (occurrence: US)
  Receive Date: 20240419
  Receipt Date: 20240419
  Transmission Date: 20240716
  Serious: Yes (Other)
  Sender: FDA-Public Use
  Company Number: US-BAYER-2024A058010

PATIENT

DRUGS (1)
  1. CLARITIN [Suspect]
     Active Substance: LORATADINE

REACTIONS (7)
  - Mental impairment [Recovered/Resolved]
  - Drug dependence [Recovered/Resolved]
  - Gastrointestinal disorder [Recovered/Resolved]
  - Brain fog [Recovered/Resolved]
  - Rebound effect [Recovered/Resolved]
  - Depression [Recovered/Resolved]
  - Anxiety [Recovered/Resolved]
